FAERS Safety Report 11314677 (Version 1)
Quarter: 2015Q3

REPORT INFORMATION
  Report Type: Report from Study
  Country: ZA (occurrence: ZA)
  Receive Date: 20150727
  Receipt Date: 20150727
  Transmission Date: 20151125
  Serious: Yes (Hospitalization)
  Sender: FDA-Public Use
  Company Number: PHHY2015ZA084544

PATIENT
  Sex: Male

DRUGS (2)
  1. ACLASTA [Suspect]
     Active Substance: ZOLEDRONIC ACID
     Indication: OSTEOPOROSIS
     Dosage: 1 DF
     Route: 065
     Dates: start: 201306
  2. ACLASTA [Suspect]
     Active Substance: ZOLEDRONIC ACID
     Dosage: 1 DF, UNK
     Route: 065
     Dates: start: 201410

REACTIONS (6)
  - Lung infection [Unknown]
  - Apparent death [Unknown]
  - Cystitis [Unknown]
  - Weight decreased [Unknown]
  - Pyrexia [Unknown]
  - Decreased appetite [Unknown]
